FAERS Safety Report 7319469 (Version 11)
Quarter: 2014Q1

REPORT INFORMATION
  Report Type: Spontaneous
  Country: US (occurrence: US)
  Receive Date: 20100315
  Receipt Date: 20140325
  Transmission Date: 20141002
  Serious: Yes (Hospitalization, Other)
  Sender: FDA-Public Use
  Company Number: US-JNJFOC-20100302002

PATIENT
  Age: 44 Year
  Sex: Male
  Weight: 108.41 kg

DRUGS (12)
  1. REMICADE [Suspect]
     Indication: CROHN^S DISEASE
     Dosage: FIRST INFUSION
     Route: 042
     Dates: start: 20100201, end: 20100201
  2. REMICADE [Suspect]
     Indication: CROHN^S DISEASE
     Route: 042
     Dates: start: 20100102
  3. REMICADE [Suspect]
     Indication: CROHN^S DISEASE
     Route: 042
     Dates: start: 20100124
  4. REMICADE [Suspect]
     Indication: CROHN^S DISEASE
     Dosage: FIRST INFUSION
     Route: 042
     Dates: start: 2003
  5. TYLENOL [Concomitant]
     Indication: PREMEDICATION
     Route: 048
     Dates: start: 20100201
  6. CLARITIN [Concomitant]
     Indication: PREMEDICATION
     Route: 048
     Dates: start: 20100201
  7. NEXIUM [Concomitant]
     Indication: GASTROOESOPHAGEAL REFLUX DISEASE
     Route: 048
     Dates: start: 200911
  8. NEXIUM [Concomitant]
     Indication: GASTROOESOPHAGEAL REFLUX DISEASE
     Route: 048
     Dates: start: 20100114
  9. MEDROL DOSE PACK [Concomitant]
     Dosage: AS DIRECTED
     Route: 065
     Dates: start: 20100202
  10. PREDNISONE [Concomitant]
     Indication: PREMEDICATION
     Route: 048
     Dates: start: 20100202
  11. PREDNISONE [Concomitant]
     Indication: PREMEDICATION
     Route: 048
     Dates: start: 20100201
  12. PREDNISONE [Concomitant]
     Indication: PREMEDICATION
     Route: 048
     Dates: start: 20100131

REACTIONS (11)
  - Type IV hypersensitivity reaction [Recovered/Resolved]
  - Muscular weakness [Unknown]
  - Arthralgia [Recovering/Resolving]
  - Joint lock [Unknown]
  - Joint swelling [Recovered/Resolved]
  - Pharyngeal oedema [Recovering/Resolving]
  - Local swelling [Recovering/Resolving]
  - Pain [Unknown]
  - Arthralgia [Recovered/Resolved]
  - Infusion related reaction [Unknown]
  - Abdominal pain [Recovered/Resolved]
